FAERS Safety Report 15437977 (Version 2)
Quarter: 2019Q2

REPORT INFORMATION
  Report Type: Spontaneous
  Country: US (occurrence: US)
  Receive Date: 20180928
  Receipt Date: 20190424
  Transmission Date: 20190711
  Serious: Yes (Other)
  Sender: FDA-Public Use
  Company Number: US-ASTRAZENECA-2018SF20570

PATIENT
  Age: 66 Year
  Sex: Male
  Weight: 110.2 kg

DRUGS (17)
  1. OXYCODONE [Concomitant]
     Active Substance: OXYCODONE
  2. TEMAZEPAM. [Concomitant]
     Active Substance: TEMAZEPAM
  3. RANITIDINE. [Concomitant]
     Active Substance: RANITIDINE
  4. METOPROLOL. [Concomitant]
     Active Substance: METOPROLOL
  5. RANITIDINE. [Concomitant]
     Active Substance: RANITIDINE
  6. PRILOSEC OTC [Suspect]
     Active Substance: OMEPRAZOLE MAGNESIUM
     Indication: GASTROOESOPHAGEAL REFLUX DISEASE
     Dosage: 20.6MG ONCE/SINGLE ADMINISTRATION
     Route: 048
     Dates: start: 2004, end: 2015
  7. TESTOSTERONE. [Concomitant]
     Active Substance: TESTOSTERONE
  8. FLONASE [Concomitant]
     Active Substance: FLUTICASONE PROPIONATE
  9. PRILOSEC OTC [Suspect]
     Active Substance: OMEPRAZOLE MAGNESIUM
     Indication: GASTROOESOPHAGEAL REFLUX DISEASE
     Dosage: GENERIC20.0MG ONCE/SINGLE ADMINISTRATION
     Route: 048
     Dates: start: 2010, end: 2011
  10. AMLODIPINE [Concomitant]
     Active Substance: AMLODIPINE BESYLATE
  11. PANTOPRAZOLE [Suspect]
     Active Substance: PANTOPRAZOLE
     Indication: GASTROOESOPHAGEAL REFLUX DISEASE
     Route: 065
     Dates: start: 2012
  12. MELOXICAM. [Concomitant]
     Active Substance: MELOXICAM
  13. HYDROCHLOROTHIAZIDE. [Concomitant]
     Active Substance: HYDROCHLOROTHIAZIDE
  14. LISINOPRIL. [Concomitant]
     Active Substance: LISINOPRIL
  15. ROPINIROLE. [Concomitant]
     Active Substance: ROPINIROLE
  16. VITAMIN B12 [Concomitant]
     Active Substance: CYANOCOBALAMIN
  17. NASACORT [Concomitant]
     Active Substance: TRIAMCINOLONE ACETONIDE

REACTIONS (3)
  - Chronic kidney disease [Not Recovered/Not Resolved]
  - Renal failure [Unknown]
  - Acute kidney injury [Not Recovered/Not Resolved]

NARRATIVE: CASE EVENT DATE: 2013
